FAERS Safety Report 8973092 (Version 1)
Quarter: 2012Q4

REPORT INFORMATION
  Report Type: 
  Country: US (occurrence: US)
  Receive Date: 20121218
  Receipt Date: 20121218
  Transmission Date: 20130627
  Serious: No
  Sender: FDA-Public Use
  Company Number: US-BRISTOL-MYERS SQUIBB COMPANY-16994485

PATIENT
  Sex: Male

DRUGS (4)
  1. ABILIFY [Suspect]
     Dates: start: 20120919
  2. ADDERALL [Concomitant]
  3. KLONOPIN [Concomitant]
  4. CITALOPRAM [Concomitant]

REACTIONS (1)
  - Urinary tract disorder [Unknown]
